FAERS Safety Report 7598251-0 (Version None)
Quarter: 2011Q3

REPORT INFORMATION
  Report Type: 
  Country: None (occurrence: None)
  Receive Date: 20110708
  Receipt Date: 20110704
  Transmission Date: 20111222
  Serious: Yes (Hospitalization)
  Sender: FDA-Public Use
  Company Number: CA-ABBOTT-11P-028-0836886-00

PATIENT
  Sex: Male
  Weight: 74 kg

DRUGS (3)
  1. MAVIK [Suspect]
     Indication: ESSENTIAL HYPERTENSION
     Route: 048
     Dates: start: 20100701, end: 20110704
  2. HYDROCHLOROTHIAZIDE [Concomitant]
     Indication: PRODUCT USED FOR UNKNOWN INDICATION
     Route: 048
  3. MAVIK [Suspect]
     Route: 048
     Dates: start: 20110704

REACTIONS (2)
  - DRUG DOSE OMISSION [None]
  - HOSPITALISATION [None]
